FAERS Safety Report 5200986-1 (Version None)
Quarter: 2007Q1

REPORT INFORMATION
  Report Type: 
  Country: None (occurrence: None)
  Receive Date: 20070108
  Receipt Date: 20070102
  Transmission Date: 20070707
  Serious: Yes (Hospitalization)
  Sender: FDA-Public Use
  Company Number: US-GLAXOSMITHKLINE-A0599956B

PATIENT
  Age: 56 Year
  Sex: Male
  Weight: 115.9 kg

DRUGS (1)
  1. DUTASTERIDE [Suspect]
     Indication: PROSTATE CANCER
     Dosage: .5MG PER DAY
     Route: 048
     Dates: start: 20040918

REACTIONS (2)
  - DYSPNOEA [None]
  - PULMONARY EMBOLISM [None]
